FAERS Safety Report 6302781 (Version 7)
Quarter: 2013Q3

REPORT INFORMATION
  Report Type: Spontaneous
  Country: US (occurrence: US)
  Receive Date: 20070502
  Receipt Date: 20130816
  Transmission Date: 20140515
  Serious: Yes (Hospitalization)
  Sender: FDA-Public Use
  Company Number: US-ELI_LILLY_AND_COMPANY-US200607001248

PATIENT
  Age: 37 Year
  Sex: Male

DRUGS (6)
  1. CYMBALTA [Suspect]
     Indication: DEPRESSION
     Dosage: 1 D/F, AS NEEDED
     Route: 048
     Dates: start: 2004, end: 2004
  2. CYMBALTA [Interacting]
     Dosage: 60 MG, DAILY (1/D)
     Route: 048
     Dates: start: 2006, end: 2006
  3. FLUOXETINE HYDROCHLORIDE [Suspect]
     Dosage: 80 MG, DAILY (1/D)
  4. ABILIFY                                 /USA/ [Concomitant]
     Indication: BIPOLAR DISORDER
     Dosage: 15 MG, DAILY (1/D)
  5. ALCOHOL [Concomitant]
     Dosage: UNK, UNKNOWN
     Route: 048
  6. LEVOTHYROXIN 0.05 MG KSA [Concomitant]
     Dosage: 250 UG, DAILY (1/D)

REACTIONS (6)
  - Acute hepatic failure [Recovered/Resolved]
  - Renal failure [Recovered/Resolved]
  - Drug interaction [Recovered/Resolved]
  - Mean cell volume abnormal [Unknown]
  - Mean cell haemoglobin [Unknown]
  - Nausea [Unknown]
